FAERS Safety Report 8269291-3 (Version None)
Quarter: 2012Q2

REPORT INFORMATION
  Report Type: 
  Country: None (occurrence: None)
  Receive Date: 20120409
  Receipt Date: 20120327
  Transmission Date: 20120825
  Serious: Yes (Hospitalization)
  Sender: FDA-Public Use
  Company Number: FR-ROCHE-1053639

PATIENT
  Sex: Female

DRUGS (3)
  1. COPEGUS [Suspect]
     Indication: HEPATITIS C
     Dosage: 400 MG
     Route: 048
     Dates: start: 20111125, end: 20120217
  2. INCIVO [Suspect]
     Indication: HEPATITIS C
     Dosage: 375 MG
     Route: 048
     Dates: start: 20111125, end: 20120210
  3. PEGASYS [Suspect]
     Indication: HEPATITIS C
     Route: 058
     Dates: start: 20111125, end: 20120217

REACTIONS (3)
  - LEUKOPENIA [None]
  - THROMBOCYTOPENIA [None]
  - ANAEMIA [None]
